FAERS Safety Report 5132237-0 (Version None)
Quarter: 2006Q4

REPORT INFORMATION
  Report Type: 
  Country: None (occurrence: None)
  Receive Date: 20061017
  Receipt Date: 20061003
  Transmission Date: 20070319
  Serious: Yes (Hospitalization)
  Sender: FDA-Public Use
  Company Number: 06H-163-0310579-00

PATIENT
  Age: 30 Year
  Sex: Female

DRUGS (4)
  1. MORPHINE SULFATE [Suspect]
     Indication: PAIN
     Dosage: 5 MG, ONCE, INTRAVENOUS; INTRAVENOUS
     Route: 042
     Dates: start: 20061002, end: 20061002
  2. MORPHINE SULFATE [Suspect]
     Indication: PAIN
     Dosage: 5 MG, ONCE, INTRAVENOUS; INTRAVENOUS
     Route: 042
     Dates: start: 20061002, end: 20061002
  3. VERSED [Concomitant]
  4. DURAMORPH PF [Concomitant]

REACTIONS (4)
  - CARDIO-RESPIRATORY ARREST [None]
  - HEART RATE INCREASED [None]
  - RESPIRATORY DEPRESSION [None]
  - UNRESPONSIVE TO STIMULI [None]
